FAERS Safety Report 17467386 (Version 3)
Quarter: 2020Q2

REPORT INFORMATION
  Report Type: Spontaneous
  Country: US (occurrence: US)
  Receive Date: 20200227
  Receipt Date: 20200515
  Transmission Date: 20200713
  Serious: No
  Sender: FDA-Public Use
  Company Number: US-PFIZER INC-2020085135

PATIENT
  Age: 78 Year
  Sex: Female
  Weight: 76.2 kg

DRUGS (2)
  1. LIPITOR [Suspect]
     Active Substance: ATORVASTATIN CALCIUM
     Dosage: UNK
  2. MEVACOR [Suspect]
     Active Substance: LOVASTATIN
     Dosage: UNK

REACTIONS (3)
  - Drug hypersensitivity [Unknown]
  - Myalgia [Unknown]
  - Pain [Unknown]
